FAERS Safety Report 7789142-0 (Version None)
Quarter: 2011Q3

REPORT INFORMATION
  Report Type: 
  Country: None (occurrence: None)
  Receive Date: 20110930
  Receipt Date: 20110922
  Transmission Date: 20111222
  Serious: Yes (Hospitalization, Other)
  Sender: FDA-Public Use
  Company Number: CH-JNJFOC-20110709786

PATIENT
  Sex: Male
  Weight: 88 kg

DRUGS (35)
  1. HEPARIN [Concomitant]
     Indication: THROMBOSIS PROPHYLAXIS
     Dates: start: 20110303, end: 20110308
  2. NOVALGIN [Concomitant]
     Indication: PAIN
     Dates: start: 20110218
  3. OXYCODONE HCL [Concomitant]
     Indication: PAIN
     Dates: start: 20110217, end: 20110311
  4. GLYBURIDE [Concomitant]
     Dates: start: 20110307
  5. ACETAMINOPHEN [Concomitant]
     Indication: PAIN
     Dates: start: 20110218
  6. ADALAT [Concomitant]
     Indication: HYPERTENSION
     Dates: start: 20110223, end: 20110223
  7. DEPONIT [Concomitant]
     Indication: HYPERTENSION
     Dates: start: 20110223, end: 20110224
  8. XARELTO [Suspect]
     Route: 001
  9. TORSEMIDE [Concomitant]
     Indication: DIURETIC THERAPY
     Dates: start: 20110221, end: 20110307
  10. DOSPEROPIN [Concomitant]
     Route: 055
     Dates: start: 20110224, end: 20110310
  11. VILAN [Concomitant]
     Dates: start: 20110217, end: 20110218
  12. METFORMIN HCL [Concomitant]
     Indication: DIABETES MELLITUS
     Dates: start: 20110307
  13. AVANDIA [Concomitant]
     Indication: DIABETES MELLITUS
     Dates: start: 20110307
  14. FLUIMUCIL [Concomitant]
     Dates: start: 20110218, end: 20110304
  15. XARELTO [Suspect]
     Route: 001
  16. MARCUMAR [Concomitant]
     Indication: THROMBOSIS PROPHYLAXIS
     Dates: start: 20110303
  17. PANTOPRAZOLE [Concomitant]
     Dates: start: 20110218
  18. DOSTINEX [Concomitant]
     Indication: BLOOD PROLACTIN ABNORMAL
     Dates: start: 20110222
  19. ROCEPHIN [Concomitant]
     Indication: INFECTION
     Dates: start: 20110222, end: 20110307
  20. PARAGOL [Concomitant]
     Indication: CONSTIPATION
  21. XARELTO [Suspect]
     Indication: THROMBOSIS PROPHYLAXIS
     Route: 001
     Dates: start: 20110217, end: 20110303
  22. GLYBURIDE [Concomitant]
     Indication: DIABETES MELLITUS
  23. GLYBURIDE [Concomitant]
     Dates: start: 20110307
  24. GLYBURIDE [Concomitant]
  25. CO-AMOXI [Concomitant]
     Indication: INFECTION
     Dates: start: 20110221, end: 20110222
  26. ACTRAPID [Concomitant]
     Indication: DIABETES MELLITUS
     Route: 058
     Dates: start: 20110217, end: 20110306
  27. ASPIRIN [Interacting]
     Indication: ANTICOAGULANT THERAPY
  28. OXYCONTIN [Concomitant]
     Indication: PAIN
     Dates: start: 20110218
  29. POTASSIUM CHLORIDE [Concomitant]
     Dosage: 2
     Dates: start: 20110304, end: 20110305
  30. POTASSIUM CHLORIDE [Concomitant]
     Dates: start: 20110221, end: 20110303
  31. XARELTO [Suspect]
     Indication: OSTEOSYNTHESIS
     Route: 001
     Dates: start: 20110217, end: 20110303
  32. POTASSIUM CHLORIDE [Concomitant]
     Indication: ELECTROLYTE IMBALANCE
     Dates: start: 20110221, end: 20110303
  33. POTASSIUM CHLORIDE [Concomitant]
     Dosage: 2
     Dates: start: 20110304, end: 20110305
  34. PRADIF [Concomitant]
     Indication: PROSTATIC DISORDER
     Dates: start: 20110301
  35. MOVIPREP [Concomitant]
     Dates: start: 20110303, end: 20110311

REACTIONS (3)
  - PULMONARY EMBOLISM [None]
  - DRUG INTERACTION [None]
  - BRONCHOPNEUMONIA [None]
